FAERS Safety Report 12887479 (Version 2)
Quarter: 2017Q1

REPORT INFORMATION
  Report Type: Spontaneous
  Country: US (occurrence: US)
  Receive Date: 20161026
  Receipt Date: 20170213
  Transmission Date: 20170428
  Serious: No
  Sender: FDA-Public Use
  Company Number: US-CELGENEUS-USA-2016105405

PATIENT
  Sex: Female

DRUGS (8)
  1. THALOMID [Suspect]
     Active Substance: THALIDOMIDE
     Dosage: 100 MILLIGRAM
     Route: 048
     Dates: start: 201609
  2. METHOTREXATE. [Concomitant]
     Active Substance: METHOTREXATE
     Indication: TYPE 2 LEPRA REACTION
     Dosage: 3.5714 MILLIGRAM
     Route: 065
  3. NEURONTIN [Concomitant]
     Active Substance: GABAPENTIN
     Indication: TYPE 2 LEPRA REACTION
     Route: 065
  4. THALOMID [Suspect]
     Active Substance: THALIDOMIDE
     Dosage: 150 MILLIGRAM
     Route: 048
     Dates: start: 20150422
  5. THALOMID [Suspect]
     Active Substance: THALIDOMIDE
     Indication: PLASMA CELL MYELOMA
     Dosage: 200 MILLIGRAM
     Route: 048
     Dates: start: 201305
  6. THALOMID [Suspect]
     Active Substance: THALIDOMIDE
     Indication: LEPROSY
     Dosage: 100MG-300MG
     Route: 048
     Dates: start: 201305
  7. THALOMID [Suspect]
     Active Substance: THALIDOMIDE
     Dosage: 200 MILLIGRAM
     Route: 048
     Dates: start: 201305
  8. PREDNISONE. [Suspect]
     Active Substance: PREDNISONE
     Indication: TYPE 2 LEPRA REACTION
     Route: 065

REACTIONS (1)
  - Contusion [Unknown]
